FAERS Safety Report 25837254 (Version 2)
Quarter: 2025Q4

REPORT INFORMATION
  Report Type: Report from Study
  Country: US (occurrence: US)
  Receive Date: 20250923
  Receipt Date: 20251017
  Transmission Date: 20260118
  Serious: No
  Sender: AGIOS PHARMACEUTICALS
  Company Number: US-AGIOS-2509US04465

PATIENT
  Age: 66 Year
  Sex: Female

DRUGS (1)
  1. MITAPIVAT [Suspect]
     Active Substance: MITAPIVAT
     Indication: Pyruvate kinase deficiency anaemia
     Dosage: 20 MILLIGRAM, BID
     Route: 048
     Dates: start: 20220929

REACTIONS (3)
  - Haemoglobin decreased [Unknown]
  - Serum ferritin abnormal [Unknown]
  - Blood bilirubin abnormal [Unknown]

NARRATIVE: CASE EVENT DATE: 20250908
